FAERS Safety Report 4623665-8 (Version None)
Quarter: 2005Q1

REPORT INFORMATION
  Report Type: 
  Country: None (occurrence: None)
  Receive Date: 20050331
  Receipt Date: 20050319
  Transmission Date: 20050727
  Serious: Yes (Death)
  Sender: FDA-Public Use
  Company Number: US-JNJFOC-20050305889

PATIENT
  Age: 66 Year
  Sex: Female

DRUGS (13)
  1. REMICADE [Suspect]
     Route: 042
  2. REMICADE [Suspect]
     Route: 042
  3. REMICADE [Suspect]
     Route: 042
  4. REMICADE [Suspect]
     Route: 042
  5. REMICADE [Suspect]
     Route: 042
  6. REMICADE [Suspect]
     Route: 042
  7. PREDNISONE [Concomitant]
  8. IMURAN [Concomitant]
  9. ROBAXIN [Concomitant]
  10. NALFON [Concomitant]
  11. BENADRYL [Concomitant]
     Indication: PREMEDICATION
     Route: 042
  12. SOLU-CORTEF [Concomitant]
     Indication: PREMEDICATION
     Route: 042
  13. ENBREL [Concomitant]

REACTIONS (11)
  - ABDOMINAL DISTENSION [None]
  - ARTHRALGIA [None]
  - CHILLS [None]
  - DEATH [None]
  - DIZZINESS [None]
  - INFUSION RELATED REACTION [None]
  - MUSCLE SPASMS [None]
  - MYALGIA [None]
  - NAUSEA [None]
  - OEDEMA [None]
  - THERAPEUTIC RESPONSE DECREASED [None]
